FAERS Safety Report 17559976 (Version 1)
Quarter: 2020Q1

REPORT INFORMATION
  Report Type: Spontaneous
  Country: US (occurrence: US)
  Receive Date: 20200319
  Receipt Date: 20200319
  Transmission Date: 20200409
  Serious: No
  Sender: FDA-Public Use
  Company Number: US-MYLANLABS-2020M1028243

PATIENT
  Sex: Female

DRUGS (1)
  1. XULANE [Suspect]
     Active Substance: ETHINYL ESTRADIOL\NORELGESTROMIN
     Indication: CONTRACEPTION
     Dosage: UNK, QW
     Route: 062
     Dates: start: 20190811

REACTIONS (3)
  - Application site erythema [Recovering/Resolving]
  - Application site rash [Not Recovered/Not Resolved]
  - Application site inflammation [Not Recovered/Not Resolved]
